FAERS Safety Report 19915168 (Version 1)
Quarter: 2021Q4

REPORT INFORMATION
  Report Type: Spontaneous
  Country: US (occurrence: US)
  Receive Date: 20211004
  Receipt Date: 20211004
  Transmission Date: 20220303
  Serious: No
  Sender: FDA-Public Use
  Company Number: US-OTSUKA-2020_031932

PATIENT
  Age: 26 Year
  Sex: Female

DRUGS (3)
  1. ABILIFY [Suspect]
     Active Substance: ARIPIPRAZOLE
     Indication: Bipolar disorder
     Dosage: 15 MG, QD
     Route: 065
     Dates: start: 20201207
  2. ABILIFY [Suspect]
     Active Substance: ARIPIPRAZOLE
     Dosage: 20 MG, QD ( IN NIGHT )
     Route: 065
     Dates: start: 202012
  3. ABILIFY [Suspect]
     Active Substance: ARIPIPRAZOLE
     Dosage: 5 MG, QD (IN DAY)
     Route: 065
     Dates: start: 202012

REACTIONS (4)
  - Eating disorder [Not Recovered/Not Resolved]
  - Trismus [Not Recovered/Not Resolved]
  - Speech disorder [Not Recovered/Not Resolved]
  - Inappropriate schedule of product administration [Unknown]

NARRATIVE: CASE EVENT DATE: 20201201
